FAERS Safety Report 26041611 (Version 1)
Quarter: 2025Q4

REPORT INFORMATION
  Report Type: Spontaneous
  Country: CN (occurrence: CN)
  Receive Date: 20251113
  Receipt Date: 20251113
  Transmission Date: 20260117
  Serious: Yes (Death)
  Sender: ABBVIE
  Company Number: CN-PFIZER INC-PV202500130401

PATIENT
  Age: 70 Year
  Sex: Female

DRUGS (1)
  1. AVIBACTAM\AZTREONAM [Suspect]
     Active Substance: AVIBACTAM\AZTREONAM
     Indication: Respiratory tract infection
     Dosage: ONCE EACH TIME, EVERY 6 HOURS
     Route: 065
     Dates: start: 20250922, end: 20251001

REACTIONS (1)
  - Therapeutic product effect incomplete [Fatal]

NARRATIVE: CASE EVENT DATE: 20250101
